FAERS Safety Report 15736356 (Version 3)
Quarter: 2019Q1

REPORT INFORMATION
  Report Type: Spontaneous
  Country: US (occurrence: US)
  Receive Date: 20181218
  Receipt Date: 20190116
  Transmission Date: 20190417
  Serious: Yes (Hospitalization)
  Sender: FDA-Public Use
  Company Number: US-TASMAN PHARMA, INC.-2018TSM00191

PATIENT
  Age: 49 Year
  Sex: Male
  Weight: 115.65 kg

DRUGS (9)
  1. VERSACLOZ [Suspect]
     Active Substance: CLOZAPINE
     Dosage: 400 MG IN THE EVENING
     Route: 048
     Dates: start: 201811
  2. SERTRALINE [Suspect]
     Active Substance: SERTRALINE HYDROCHLORIDE
     Dosage: UNK
     Dates: end: 2018
  3. VERSACLOZ [Suspect]
     Active Substance: CLOZAPINE
     Dosage: 100 MG IN THE MORNING
     Route: 048
     Dates: start: 201811
  4. VERSACLOZ [Suspect]
     Active Substance: CLOZAPINE
     Dosage: 400 MG IN THE EVENING
     Route: 048
     Dates: end: 2018
  5. DEPAKOTE [Suspect]
     Active Substance: DIVALPROEX SODIUM
     Dosage: UNK
     Dates: start: 201811
  6. CLOZAPINE. [Suspect]
     Active Substance: CLOZAPINE
  7. SERTRALINE [Suspect]
     Active Substance: SERTRALINE HYDROCHLORIDE
     Dosage: UNK
     Dates: start: 201811
  8. DEPAKOTE [Suspect]
     Active Substance: DIVALPROEX SODIUM
     Dosage: UNK
     Dates: end: 2018
  9. VERSACLOZ [Suspect]
     Active Substance: CLOZAPINE
     Indication: SCHIZOPHRENIA
     Dosage: 100 MG IN THE MORNING
     Route: 048
     Dates: end: 2018

REACTIONS (5)
  - Schizophrenia [Recovered/Resolved]
  - Treatment noncompliance [Recovered/Resolved]
  - Suicidal ideation [Not Recovered/Not Resolved]
  - Feeling of despair [Not Recovered/Not Resolved]
  - Hypomania [Not Recovered/Not Resolved]

NARRATIVE: CASE EVENT DATE: 2018
